FAERS Safety Report 6718042-X (Version None)
Quarter: 2010Q2

REPORT INFORMATION
  Report Type: 
  Country: None (occurrence: None)
  Receive Date: 20100510
  Receipt Date: 20100429
  Transmission Date: 20101027
  Serious: Yes (Other)
  Sender: FDA-Public Use
  Company Number: PHHY2010BR27800

PATIENT
  Age: 79 Year
  Sex: Male

DRUGS (1)
  1. FORASEQ [Suspect]
     Indication: EMPHYSEMA
     Dosage: 1 DF, BID
     Dates: start: 20090101

REACTIONS (7)
  - DRY MOUTH [None]
  - EMPHYSEMA [None]
  - FATIGUE [None]
  - JOINT SWELLING [None]
  - MALAISE [None]
  - NODULE [None]
  - ORAL CANDIDIASIS [None]
